FAERS Safety Report 7437227-0 (Version None)
Quarter: 2011Q2

REPORT INFORMATION
  Report Type: 
  Country: None (occurrence: None)
  Receive Date: 20110426
  Receipt Date: 20110418
  Transmission Date: 20111010
  Serious: Yes (Hospitalization)
  Sender: FDA-Public Use
  Company Number: AR-BRISTOL-MYERS SQUIBB COMPANY-15568678

PATIENT
  Age: 30 Year
  Sex: Male

DRUGS (4)
  1. HALOPERIDOL [Concomitant]
     Dosage: 1 CAPS/DAY.1MG 8-21FEB11,5MG 22FEB11 TO 3MAR11,7.5MG 4-8MAR11,10MG 9-13MAR11,15MG ON 14MAR11-ONG
     Route: 048
     Dates: start: 20101020
  2. RISPERIDONE [Concomitant]
     Dosage: 2 CAPSULE PER DAY. 3MG QD 8-14FEB11, 2MG QD 15-21FEB11,4MG QD 22FEB11-3MAR11 + 3MG ON 4MAR11-ONG
     Route: 048
     Dates: start: 20090624
  3. ARIPIPRAZOLE [Suspect]
     Indication: SCHIZOPHRENIA
     Route: 048
     Dates: start: 20110125, end: 20110221
  4. LORAZEPAM [Concomitant]
     Dosage: 1 CAPSULE PER DAY
     Dates: start: 20100308

REACTIONS (1)
  - PSYCHOTIC DISORDER [None]
